FAERS Safety Report 5584676-1 (Version None)
Quarter: 2008Q1

REPORT INFORMATION
  Report Type: 
  Country: None (occurrence: None)
  Receive Date: 20080108
  Receipt Date: 20071228
  Transmission Date: 20080703
  Serious: Yes (Other)
  Sender: FDA-Public Use
  Company Number: JP-PFIZER INC-2007108794

PATIENT
  Age: 39 Year
  Sex: Male

DRUGS (2)
  1. SALAZOPYRIN [Suspect]
     Indication: COLITIS ULCERATIVE
     Dosage: DAILY DOSE:3GRAM
     Route: 048
     Dates: start: 20071105, end: 20071222
  2. MESALAMINE [Suspect]
     Indication: COLITIS ULCERATIVE
     Dosage: DAILY DOSE:1GRAM
     Route: 054
     Dates: start: 20071203, end: 20071222

REACTIONS (2)
  - DRUG TOXICITY [None]
  - HEPATIC FUNCTION ABNORMAL [None]
